FAERS Safety Report 5586595-3 (Version None)
Quarter: 2008Q1

REPORT INFORMATION
  Report Type: 
  Country: None (occurrence: None)
  Receive Date: 20080110
  Receipt Date: 20070919
  Transmission Date: 20080703
  Serious: No
  Sender: FDA-Public Use
  Company Number: US-BAYER-US-2007-035530

PATIENT
  Age: 36 Year
  Sex: Female
  Weight: 112 kg

DRUGS (13)
  1. YAZ [Suspect]
     Indication: ORAL CONTRACEPTION
     Route: 048
     Dates: start: 20070101
  2. ULTRAM [Concomitant]
  3. LEXAPRO [Concomitant]
  4. KLONOPIN [Concomitant]
     Dosage: UNIT DOSE: 1 MG
  5. LISINOPRIL [Concomitant]
  6. DOXEPIN HCL [Concomitant]
  7. ANTIDEPRESSANTS [Concomitant]
     Dosage: UNIT DOSE: 60 MG
  8. DICLOFENAC SODIUM [Concomitant]
     Dosage: UNIT DOSE: 75 MG
  9. METHOCARBAMOL [Concomitant]
     Dosage: UNIT DOSE: 750 MG
  10. DARVOCET-N 100 [Concomitant]
  11. SEROQUEL [Concomitant]
  12. WELLBUTRIN [Concomitant]
  13. PREGABALIN [Concomitant]

REACTIONS (1)
  - MENSTRUATION DELAYED [None]
